FAERS Safety Report 19062795 (Version 5)
Quarter: 2022Q2

REPORT INFORMATION
  Report Type: Spontaneous
  Country: US (occurrence: US)
  Receive Date: 20210326
  Receipt Date: 20220422
  Transmission Date: 20220721
  Serious: No
  Sender: FDA-Public Use
  Company Number: US-PFIZER INC-2020489388

PATIENT
  Age: 68 Year
  Sex: Female
  Weight: 77.11 kg

DRUGS (3)
  1. PREMPRO [Suspect]
     Active Substance: ESTROGENS, CONJUGATED\MEDROXYPROGESTERONE ACETATE
     Indication: Bone disorder
     Dosage: 1 DF, DAILY
     Route: 048
     Dates: start: 2006
  2. PREMPRO [Suspect]
     Active Substance: ESTROGENS, CONJUGATED\MEDROXYPROGESTERONE ACETATE
     Indication: Spinal operation
  3. PREMPRO [Suspect]
     Active Substance: ESTROGENS, CONJUGATED\MEDROXYPROGESTERONE ACETATE
     Indication: Joint surgery

REACTIONS (10)
  - Migraine [Unknown]
  - Headache [Unknown]
  - Malaise [Unknown]
  - Menopausal symptoms [Not Recovered/Not Resolved]
  - Hyperhidrosis [Unknown]
  - Night sweats [Unknown]
  - Feeling abnormal [Unknown]
  - Mental disorder [Unknown]
  - Illness [Unknown]
  - Off label use [Unknown]

NARRATIVE: CASE EVENT DATE: 20210326
